FAERS Safety Report 6949123-3 (Version None)
Quarter: 2010Q3

REPORT INFORMATION
  Report Type: 
  Country: None (occurrence: None)
  Receive Date: 20100828
  Receipt Date: 20091209
  Transmission Date: 20110219
  Serious: No
  Sender: FDA-Public Use
  Company Number: US-ABBOTT-09P-163-0613336-00

PATIENT
  Sex: Male
  Weight: 88.53 kg

DRUGS (9)
  1. NIASPAN [Suspect]
     Indication: HYPERCHOLESTEROLAEMIA
     Dosage: ONE DOSE
     Route: 048
  2. NIASPAN [Suspect]
     Dosage: FOR 2 WEEKS
     Route: 048
  3. NIASPAN [Suspect]
     Dosage: 1/500 MG IN MORNING + 2/500 MG IN NIGHT
     Route: 048
  4. FOLIC ACID [Concomitant]
     Indication: PRODUCT USED FOR UNKNOWN INDICATION
  5. OTHER OVER THE COUNTER SUPPLEMENTS [Concomitant]
     Indication: PRODUCT USED FOR UNKNOWN INDICATION
  6. CHOLESTYRAMINE [Concomitant]
     Indication: PRODUCT USED FOR UNKNOWN INDICATION
  7. LOTREL [Concomitant]
     Indication: PRODUCT USED FOR UNKNOWN INDICATION
  8. CYMBALTA [Concomitant]
     Indication: PRODUCT USED FOR UNKNOWN INDICATION
  9. HYDROCODONE BITARTRATE [Concomitant]
     Indication: PRODUCT USED FOR UNKNOWN INDICATION

REACTIONS (3)
  - FLUSHING [None]
  - PAIN IN EXTREMITY [None]
  - STOMATITIS [None]
